FAERS Safety Report 8787668 (Version 1)
Quarter: 2012Q4

REPORT INFORMATION
  Report Type: Report from Study
  Country: US (occurrence: US)
  Receive Date: 20120914
  Receipt Date: 20120914
  Transmission Date: 20130627
  Serious: No
  Sender: FDA-Public Use
  Company Number: US-VERTEX PHARMACEUTICAL INC.-AE-2012-009581

PATIENT

DRUGS (12)
  1. INCIVEK [Suspect]
     Indication: HEPATITIS C
     Route: 048
     Dates: start: 20120405
  2. PEGASYS [Concomitant]
     Indication: HEPATITIS C
     Route: 058
     Dates: start: 20120405
  3. RIBASPHERE [Concomitant]
     Indication: HEPATITIS C
     Route: 048
     Dates: start: 20120405
  4. ZOLPIDEM TARTRATE [Concomitant]
     Route: 048
  5. ROPINIROLE HCL [Concomitant]
     Route: 048
  6. TRAMADOL HCL [Concomitant]
  7. METOPROLOL TARTRATE [Concomitant]
  8. INDOMETHACIN [Concomitant]
  9. LISINOPRIL [Concomitant]
  10. CHLORTHALIDONE [Concomitant]
  11. CVS MELATONIN [Concomitant]
  12. CVS OMEPRAZOLE [Concomitant]

REACTIONS (1)
  - Anaemia [Unknown]
